FAERS Safety Report 21280884 (Version 1)
Quarter: 2022Q3

REPORT INFORMATION
  Report Type: Spontaneous
  Country: US (occurrence: US)
  Receive Date: 20220901
  Receipt Date: 20220901
  Transmission Date: 20221026
  Serious: No
  Sender: FDA-Public Use
  Company Number: US-BAYER-2022A112786

PATIENT
  Age: 98 Year
  Sex: Male

DRUGS (3)
  1. NUBEQA [Suspect]
     Active Substance: DAROLUTAMIDE
     Dosage: 600 MG, BID
     Dates: start: 20220309
  2. NUBEQA [Suspect]
     Active Substance: DAROLUTAMIDE
     Dosage: 150 MG, BID
     Dates: start: 20220509, end: 20220602
  3. NUBEQA [Suspect]
     Active Substance: DAROLUTAMIDE
     Dosage: 300 MG, BID

REACTIONS (4)
  - Illness [None]
  - Fatigue [None]
  - Fall [None]
  - Incorrect dose administered [None]

NARRATIVE: CASE EVENT DATE: 20220309
